FAERS Safety Report 4830695-X (Version None)
Quarter: 2005Q4

REPORT INFORMATION
  Report Type: 
  Country: None (occurrence: None)
  Receive Date: 20051115
  Receipt Date: 20051101
  Transmission Date: 20060501
  Serious: Yes (Other)
  Sender: FDA-Public Use
  Company Number: 230025K05GBR

PATIENT
  Age: 50 Year
  Sex: Male

DRUGS (3)
  1. REBIF [Suspect]
     Indication: SECONDARY PROGRESSIVE MULTIPLE SCLEROSIS
  2. DANTROLENE [Concomitant]
  3. AMANTADINE /00055901/ [Concomitant]

REACTIONS (1)
  - BLADDER CANCER [None]
